FAERS Safety Report 13387683 (Version 2)
Quarter: 2017Q2

REPORT INFORMATION
  Report Type: Report from Study
  Country: US (occurrence: US)
  Receive Date: 20170330
  Receipt Date: 20170411
  Transmission Date: 20170830
  Serious: Yes (Hospitalization)
  Sender: FDA-Public Use
  Company Number: US-ACTELION-A-NJ2017-151531

PATIENT
  Age: 20 Year
  Sex: Male

DRUGS (8)
  1. AMITIZA [Concomitant]
     Active Substance: LUBIPROSTONE
     Dosage: 1 DF, QD
     Route: 048
     Dates: start: 20161008
  2. DEPAKOTE [Concomitant]
     Active Substance: DIVALPROEX SODIUM
     Dosage: 1 DF, TID
     Route: 048
     Dates: start: 20161008
  3. DIAZEPAM. [Concomitant]
     Active Substance: DIAZEPAM
     Dosage: 1 DF, PRN
     Route: 048
     Dates: start: 20161008
  4. ZAVESCA [Suspect]
     Active Substance: MIGLUSTAT
     Indication: LIPIDOSIS
     Dosage: 25 MG, BID
     Route: 048
     Dates: start: 20130904
  5. THYROID [Concomitant]
     Active Substance: LEVOTHYROXINE\LIOTHYRONINE
     Dosage: 1 GRAIN DAILY
     Route: 048
     Dates: start: 20160504
  6. TRAZODONE [Concomitant]
     Active Substance: TRAZODONE HYDROCHLORIDE
     Dosage: 50 MG, QHS
  7. MANNITOL. [Concomitant]
     Active Substance: MANNITOL
     Dosage: 360 MG, UNK
     Route: 048
     Dates: start: 20161120
  8. BUDESONIDE. [Concomitant]
     Active Substance: BUDESONIDE

REACTIONS (3)
  - Device related infection [Recovering/Resolving]
  - Incontinence [Recovering/Resolving]
  - Infection [Recovering/Resolving]

NARRATIVE: CASE EVENT DATE: 20170310
